FAERS Safety Report 16200463 (Version 4)
Quarter: 2020Q4

REPORT INFORMATION
  Report Type: Spontaneous
  Country: ES (occurrence: ES)
  Receive Date: 20190416
  Receipt Date: 20201230
  Transmission Date: 20210113
  Serious: Yes (Other)
  Sender: FDA-Public Use
  Company Number: ES-ROCHE-2303075

PATIENT
  Age: 70 Year
  Sex: Female

DRUGS (6)
  1. RITUXIMAB. [Suspect]
     Active Substance: RITUXIMAB
     Indication: CHRONIC LYMPHOCYTIC LEUKAEMIA
     Route: 065
     Dates: start: 201705, end: 20190102
  2. VENETOCLAX. [Suspect]
     Active Substance: VENETOCLAX
     Indication: CHRONIC LYMPHOCYTIC LEUKAEMIA
     Route: 048
     Dates: start: 20190205, end: 201903
  3. IMBRUVICA [Suspect]
     Active Substance: IBRUTINIB
     Indication: CHRONIC LYMPHOCYTIC LEUKAEMIA
     Route: 048
     Dates: start: 201705, end: 20190102
  4. RITUXIMAB. [Suspect]
     Active Substance: RITUXIMAB
     Route: 065
     Dates: start: 201508, end: 201602
  5. VENETOCLAX. [Suspect]
     Active Substance: VENETOCLAX
     Indication: CHRONIC LYMPHOCYTIC LEUKAEMIA
     Route: 048
     Dates: start: 20190104, end: 20190107
  6. VENETOCLAX. [Suspect]
     Active Substance: VENETOCLAX
     Route: 048
     Dates: start: 20190225, end: 201903

REACTIONS (16)
  - Campylobacter gastroenteritis [Unknown]
  - Diarrhoea [Unknown]
  - Neutropenia [Recovered/Resolved]
  - Oedema peripheral [Unknown]
  - Blood lactate dehydrogenase increased [Unknown]
  - Streptococcus test positive [Unknown]
  - Hyperhidrosis [Unknown]
  - Hepatosplenomegaly [Unknown]
  - Tumour lysis syndrome [Unknown]
  - Leukocytosis [Unknown]
  - Cholestasis [Unknown]
  - Lymphadenopathy [Unknown]
  - Aphasia [Recovered/Resolved]
  - Liver disorder [Unknown]
  - Chronic lymphocytic leukaemia [Unknown]
  - Richter^s syndrome [Unknown]

NARRATIVE: CASE EVENT DATE: 2019
